FAERS Safety Report 15686044 (Version 1)
Quarter: 2018Q4

REPORT INFORMATION
  Report Type: Spontaneous
  Country: US (occurrence: US)
  Receive Date: 20181204
  Receipt Date: 20181204
  Transmission Date: 20190205
  Serious: No
  Sender: FDA-Public Use
  Company Number: US-SA-2018SA327226

PATIENT
  Sex: Male

DRUGS (1)
  1. ALIROCUMAB [Suspect]
     Active Substance: ALIROCUMAB
     Indication: PRODUCT USED FOR UNKNOWN INDICATION
     Dosage: 75 MG
     Route: 058
     Dates: start: 20180921, end: 20181126

REACTIONS (2)
  - Rash [Recovered/Resolved]
  - Discharge [Unknown]

NARRATIVE: CASE EVENT DATE: 2018
